FAERS Safety Report 5253253-4 (Version None)
Quarter: 2007Q1

REPORT INFORMATION
  Report Type: 
  Country: None (occurrence: None)
  Receive Date: 20070301
  Receipt Date: 20070223
  Transmission Date: 20070707
  Serious: Yes (Disabling)
  Sender: FDA-Public Use
  Company Number: 2007UW02305

PATIENT
  Age: 72 Year
  Sex: Male

DRUGS (9)
  1. CRESTOR [Suspect]
     Route: 048
     Dates: start: 20060601, end: 20070126
  2. TRUVADA [Interacting]
     Indication: HIV INFECTION
     Dates: end: 20070126
  3. TRUVADA [Interacting]
     Dates: start: 20070101
  4. SUSTIVA [Interacting]
     Indication: HIV INFECTION
     Dates: end: 20070126
  5. SUSTIVA [Interacting]
     Dates: start: 20070101
  6. IRON SULFATETHIAMIN COMPOUND TAB [Concomitant]
  7. FLOMAX [Concomitant]
  8. ALBUTEROL [Concomitant]
     Dosage: MDI
  9. FLUCONAZOLE [Concomitant]

REACTIONS (3)
  - BRONCHITIS [None]
  - DRUG INTERACTION [None]
  - RENAL TUBULAR NECROSIS [None]
